FAERS Safety Report 8549767-1 (Version None)
Quarter: 2012Q3

REPORT INFORMATION
  Report Type: 
  Country: None (occurrence: None)
  Receive Date: 20120730
  Receipt Date: 20120724
  Transmission Date: 20120928
  Serious: No
  Sender: FDA-Public Use
  Company Number: US-PFIZER INC-2012168248

PATIENT

DRUGS (1)
  1. CHANTIX [Suspect]
     Dosage: UNK
     Dates: start: 20120701

REACTIONS (5)
  - WEIGHT INCREASED [None]
  - PAIN IN EXTREMITY [None]
  - FATIGUE [None]
  - STRESS [None]
  - WEIGHT DECREASED [None]
